FAERS Safety Report 8716479 (Version 6)
Quarter: 2014Q1

REPORT INFORMATION
  Report Type: Spontaneous
  Country: US (occurrence: US)
  Receive Date: 20120810
  Receipt Date: 20140318
  Transmission Date: 20141002
  Serious: Yes (Life-Threatening, Hospitalization, Disabling, Other)
  Sender: FDA-Public Use
  Company Number: US-009507513-2012SP023050

PATIENT
  Sex: Female
  Weight: 67.57 kg

DRUGS (1)
  1. NUVARING [Suspect]
     Indication: CONTRACEPTION
     Dosage: UNK
     Route: 067
     Dates: start: 20090123, end: 20100815

REACTIONS (8)
  - Pleural effusion [Unknown]
  - Pulmonary embolism [Unknown]
  - Pulmonary infarction [Unknown]
  - Heart rate irregular [Unknown]
  - Emotional disorder [Unknown]
  - Thyroid neoplasm [Unknown]
  - Lung infiltration [Unknown]
  - Atelectasis [Unknown]
